FAERS Safety Report 8964713 (Version 1)
Quarter: 2012Q4

REPORT INFORMATION
  Report Type: 
  Country: DE (occurrence: DE)
  Receive Date: 20121213
  Receipt Date: 20121213
  Transmission Date: 20130627
  Serious: Yes (Hospitalization)
  Sender: FDA-Public Use
  Company Number: DE-ALLERGAN-1216990US

PATIENT
  Sex: Female

DRUGS (2)
  1. VISTABEL [Suspect]
     Indication: GLABELLAR FROWN LINES
     Dosage: UNK
     Dates: start: 20121201, end: 20121201
  2. UNSPECIFIED INGREDIENTS [Suspect]
     Dosage: UNK
     Dates: start: 20121201

REACTIONS (1)
  - Angioedema [Recovered/Resolved]
